FAERS Safety Report 14210598 (Version 2)
Quarter: 2018Q1

REPORT INFORMATION
  Report Type: Spontaneous
  Country: FR (occurrence: FR)
  Receive Date: 20171121
  Receipt Date: 20180117
  Transmission Date: 20180508
  Serious: Yes (Other)
  Sender: FDA-Public Use
  Company Number: FR-PFIZER INC-2017494359

PATIENT
  Age: 64 Year
  Sex: Female
  Weight: 81 kg

DRUGS (11)
  1. INSPRA [Concomitant]
     Active Substance: EPLERENONE
     Dosage: 25 MG, DAILY
     Route: 048
  2. UVEDOSE [Concomitant]
     Active Substance: CHOLECALCIFEROL
     Dosage: 3 DF, MONTHLY
     Route: 048
  3. LEVOTHYROX [Concomitant]
     Active Substance: LEVOTHYROXINE
     Indication: THYROID DISORDER
     Dosage: 100 UG, 1X/DAY
     Route: 048
     Dates: start: 2015
  4. TARDYFERON [Concomitant]
     Active Substance: FERROUS SULFATE
     Dosage: UNK
     Route: 048
     Dates: start: 201602
  5. URSOLVAN [Concomitant]
     Active Substance: URSODIOL
     Dosage: 3 DF, DAILY
     Route: 048
     Dates: start: 201506
  6. BISOPROLOL [Concomitant]
     Active Substance: BISOPROLOL
     Dosage: 10 MG, 1X/DAY
     Route: 048
  7. COTRIATEC [Concomitant]
     Active Substance: HYDROCHLOROTHIAZIDE\RAMIPRIL
     Dosage: 2 DF, DAILY
     Route: 048
  8. DIAMICRON [Concomitant]
     Active Substance: GLICLAZIDE
     Dosage: 30 MG, DAILY
     Route: 048
     Dates: start: 201410
  9. SOMAVERT [Suspect]
     Active Substance: PEGVISOMANT
     Indication: ACROMEGALY
     Dosage: 10 MG, DAILY
     Route: 058
     Dates: start: 20161110
  10. METFORMIN [Concomitant]
     Active Substance: METFORMIN HYDROCHLORIDE
     Dosage: 500 MG, DAILY
     Route: 048
     Dates: start: 201410
  11. KARDEGIC [Concomitant]
     Active Substance: ASPIRIN DL-LYSINE
     Dosage: 75 MG, 1X/DAY
     Route: 048

REACTIONS (4)
  - Therapeutic response unexpected [Unknown]
  - Diabetes mellitus [Recovering/Resolving]
  - Pre-existing condition improved [Unknown]
  - Condition aggravated [Recovering/Resolving]

NARRATIVE: CASE EVENT DATE: 201701
